FAERS Safety Report 8987556 (Version 1)
Quarter: 2012Q4

REPORT INFORMATION
  Report Type: 
  Country: GB (occurrence: GB)
  Receive Date: 20121227
  Receipt Date: 20121227
  Transmission Date: 20130627
  Serious: Yes (Disabling)
  Sender: FDA-Public Use
  Company Number: GB-PFIZER INC-2012327628

PATIENT
  Age: 25 Year
  Sex: Female
  Weight: 57.15 kg

DRUGS (1)
  1. DEPO-PROVERA [Suspect]
     Indication: BIRTH CONTROL
     Dosage: 1 DF (one injection)
     Route: 051

REACTIONS (15)
  - Loss of libido [Recovered/Resolved with Sequelae]
  - Depressed mood [Recovered/Resolved]
  - Mood altered [Recovered/Resolved]
  - Emotional poverty [Recovered/Resolved]
  - Fatigue [Recovered/Resolved]
  - Feeling abnormal [Recovered/Resolved]
  - Dissociation [Recovered/Resolved]
  - Irritability [Recovered/Resolved]
  - Dissociation [Recovered/Resolved]
  - Decreased interest [Recovering/Resolving]
  - Depressed mood [Recovering/Resolving]
  - Crying [Recovering/Resolving]
  - Anger [Unknown]
  - Feeling guilty [Unknown]
  - Incorrect route of drug administration [Unknown]
